FAERS Safety Report 5189508-1 (Version None)
Quarter: 2006Q4

REPORT INFORMATION
  Report Type: 
  Country: None (occurrence: None)
  Receive Date: 20061221
  Receipt Date: 20050707
  Transmission Date: 20070319
  Serious: No
  Sender: FDA-Public Use
  Company Number: US-AMGEN-US141506

PATIENT
  Sex: Female

DRUGS (7)
  1. ENBREL [Suspect]
     Indication: PSORIASIS
     Route: 058
     Dates: start: 20050504
  2. ENBREL [Suspect]
     Dates: start: 20050621
  3. TOBREX [Concomitant]
     Route: 065
  4. CELEBREX [Concomitant]
     Route: 065
  5. ALLEGRA [Concomitant]
     Route: 065
  6. PREVACID [Concomitant]
     Route: 065
  7. CLIMARA [Concomitant]
     Route: 065

REACTIONS (2)
  - GAIT DISTURBANCE [None]
  - PLATELET COUNT INCREASED [None]
